FAERS Safety Report 16279310 (Version 1)
Quarter: 2019Q2

REPORT INFORMATION
  Report Type: Report from Study
  Country: US (occurrence: US)
  Receive Date: 20190507
  Receipt Date: 20190507
  Transmission Date: 20190711
  Serious: Yes (Hospitalization)
  Sender: FDA-Public Use
  Company Number: US-TAKEDA-2019TUS027731

PATIENT
  Sex: Female

DRUGS (1)
  1. VEDOLIZUMAB [Suspect]
     Active Substance: VEDOLIZUMAB
     Indication: CROHN^S DISEASE
     Dosage: 300 MILLIGRAM
     Route: 042
     Dates: start: 201601

REACTIONS (5)
  - Poor venous access [Not Recovered/Not Resolved]
  - Crohn^s disease [Unknown]
  - Weight fluctuation [Unknown]
  - Depression [Unknown]
  - Product dose omission [Unknown]

NARRATIVE: CASE EVENT DATE: 2016
